FAERS Safety Report 9056967 (Version 1)
Quarter: 2013Q1

REPORT INFORMATION
  Report Type: Report from Study
  Country: US (occurrence: US)
  Receive Date: 20130131
  Receipt Date: 20130131
  Transmission Date: 20140127
  Serious: No
  Sender: FDA-Public Use
  Company Number: US-ABBOTT-12P-163-0989453-00

PATIENT
  Sex: Female
  Weight: 72.64 kg

DRUGS (12)
  1. HUMIRA [Suspect]
     Indication: RHEUMATOID ARTHRITIS
     Route: 050
     Dates: start: 20100129, end: 20100222
  2. PRENATAL VITAMINS [Concomitant]
     Indication: PRODUCT USED FOR UNKNOWN INDICATION
     Dosage: 2 PILLS A WEEK
     Route: 048
     Dates: start: 20100224, end: 20101103
  3. MULTIVITAMINS [Concomitant]
     Indication: PRODUCT USED FOR UNKNOWN INDICATION
     Dosage: 1 PILL A DAY
     Route: 048
     Dates: start: 20100129, end: 20100223
  4. IUD NOS [Concomitant]
     Indication: PRODUCT USED FOR UNKNOWN INDICATION
     Dates: start: 20100129, end: 20100204
  5. CAFFEINE [Concomitant]
     Indication: PRODUCT USED FOR UNKNOWN INDICATION
     Dosage: 32 OZ SODA 2.6 SERVING A WEEK
     Dates: start: 20100524, end: 20101103
  6. CELEBREX [Concomitant]
     Indication: PAIN
     Route: 048
     Dates: start: 20100129, end: 20100224
  7. PREDNISONE [Concomitant]
     Indication: RHEUMATOID ARTHRITIS
     Route: 048
     Dates: start: 20100514, end: 20101103
  8. PREVACID [Concomitant]
     Indication: FLATULENCE
     Dosage: 2 TOTAL
     Route: 048
     Dates: start: 20100401, end: 20100731
  9. IBUPROFEN [Concomitant]
     Indication: PAIN
     Dosage: STARTED TAKING THE BEGINNING OF THE 2ND TRIMESTER
     Route: 048
     Dates: start: 20100508, end: 20100909
  10. ZYRTEC [Concomitant]
     Indication: HYPERSENSITIVITY
     Dosage: 1 PILL
     Route: 048
     Dates: start: 20100128, end: 20101103
  11. TUMS [Concomitant]
     Indication: DYSPEPSIA
     Dosage: 4 PILLS A DAY
     Route: 048
     Dates: start: 20100129, end: 20101103
  12. SUDAFED [Concomitant]
     Indication: HYPERSENSITIVITY
     Dosage: 1 PILL DAILY
     Route: 048
     Dates: start: 20101001, end: 20101103

REACTIONS (5)
  - Nasopharyngitis [Recovered/Resolved]
  - Pain [Unknown]
  - Flatulence [Unknown]
  - Hypersensitivity [Unknown]
  - Dyspepsia [Unknown]
